FAERS Safety Report 9327947 (Version 1)
Quarter: 2013Q2

REPORT INFORMATION
  Report Type: Spontaneous
  Country: US (occurrence: US)
  Receive Date: 20130604
  Receipt Date: 20130604
  Transmission Date: 20140414
  Serious: No
  Sender: FDA-Public Use
  Company Number: US-SANOFI-AVENTIS-2012SA042489

PATIENT
  Age: 51 Year
  Sex: Female

DRUGS (9)
  1. SOLOSTAR [Suspect]
     Indication: DEVICE THERAPY
  2. SOLOSTAR [Suspect]
     Indication: DEVICE THERAPY
  3. LANTUS SOLOSTAR [Suspect]
     Indication: PRODUCT USED FOR UNKNOWN INDICATION
     Dosage: DOSE:60 UNIT(S)
     Route: 058
  4. LANTUS SOLOSTAR [Suspect]
     Indication: PRODUCT USED FOR UNKNOWN INDICATION
     Dosage: DOSE:60 UNIT(S)
     Route: 058
  5. ASPIRIN [Concomitant]
  6. METFORMIN [Concomitant]
     Indication: DIABETES MELLITUS
  7. AMITRIPTYLINE [Concomitant]
     Indication: GASTRITIS
  8. LISINOPRIL [Concomitant]
  9. LOVASTIN [Concomitant]
     Route: 048

REACTIONS (7)
  - Skin ulcer [Not Recovered/Not Resolved]
  - Pain in extremity [Not Recovered/Not Resolved]
  - Exposure during pregnancy [Unknown]
  - Palpitations [Unknown]
  - Fatigue [Unknown]
  - Blood glucose increased [Recovering/Resolving]
  - Expired drug administered [Unknown]
